FAERS Safety Report 23595516 (Version 1)
Quarter: 2024Q1

REPORT INFORMATION
  Report Type: Spontaneous
  Country: US (occurrence: None)
  Receive Date: 20240304
  Receipt Date: 20240304
  Transmission Date: 20240410
  Serious: No
  Sender: FDA-Public Use
  Company Number: None

PATIENT
  Age: 31 Year
  Sex: Female
  Weight: 62.14 kg

DRUGS (5)
  1. MIRENA [Suspect]
     Active Substance: LEVONORGESTREL
  2. OTC iron [Concomitant]
  3. VITAMINS [Concomitant]
     Active Substance: VITAMINS
  4. generic Allegra [Concomitant]
  5. FLONASE SENSIMIST ALLERGY RELIEF [Concomitant]
     Active Substance: FLUTICASONE FUROATE

REACTIONS (5)
  - Alopecia [None]
  - Back pain [None]
  - Mood altered [None]
  - Visual impairment [None]
  - Glare [None]
